FAERS Safety Report 13779222 (Version 2)
Quarter: 2017Q3

REPORT INFORMATION
  Report Type: Spontaneous
  Country: US (occurrence: US)
  Receive Date: 20170721
  Receipt Date: 20170728
  Transmission Date: 20171127
  Serious: Yes (Other)
  Sender: FDA-Public Use
  Company Number: US-PFIZER INC-2017310447

PATIENT
  Age: 29 Year
  Sex: Male

DRUGS (2)
  1. TRENBOLONE [Suspect]
     Active Substance: TRENBOLONE
     Dosage: UNK (1.5 CC) (EXOGENOUS HORMONE)
     Route: 058
  2. TESTOSTERONE CIPIONATE [Suspect]
     Active Substance: TESTOSTERONE
     Dosage: UNK (2 CC) (EXOGENOUS HORMONE, INJECTION)
     Route: 058

REACTIONS (1)
  - Acne conglobata [Recovering/Resolving]
